FAERS Safety Report 9953215 (Version 1)
Quarter: 2014Q1

REPORT INFORMATION
  Report Type: Spontaneous
  Country: GR (occurrence: GR)
  Receive Date: 20140304
  Receipt Date: 20140304
  Transmission Date: 20141002
  Serious: Yes (Hospitalization)
  Sender: FDA-Public Use
  Company Number: GR-SA-2014SA027336

PATIENT
  Age: 65 Year
  Sex: Female

DRUGS (2)
  1. TAXOTERE [Suspect]
     Indication: BREAST CANCER METASTATIC
     Route: 065
  2. BEVACIZUMAB [Concomitant]
     Indication: BREAST CANCER METASTATIC

REACTIONS (3)
  - Cystoid macular oedema [Recovering/Resolving]
  - Retinal disorder [Recovering/Resolving]
  - Visual acuity reduced [Recovering/Resolving]
